FAERS Safety Report 5863389-2 (Version None)
Quarter: 2008Q3

REPORT INFORMATION
  Report Type: 
  Country: None (occurrence: None)
  Receive Date: 20080828
  Receipt Date: 20080820
  Transmission Date: 20090109
  Serious: Yes (Other)
  Sender: FDA-Public Use
  Company Number: PHHY2008JP18674

PATIENT
  Age: 20 Year
  Sex: Female

DRUGS (4)
  1. NEORAL [Suspect]
     Indication: BONE MARROW TRANSPLANT
  2. CYCLOPHOSPHAMIDE [Concomitant]
     Indication: BONE MARROW TRANSPLANT
  3. METHOTREXATE [Concomitant]
     Indication: BONE MARROW TRANSPLANT
  4. PREDNISOLONE [Concomitant]
     Indication: BONE MARROW TRANSPLANT

REACTIONS (5)
  - ACUTE GRAFT VERSUS HOST DISEASE IN SKIN [None]
  - OBLITERATIVE BRONCHIOLITIS [None]
  - ORGANISING PNEUMONIA [None]
  - PNEUMATOSIS INTESTINALIS [None]
  - PNEUMOTHORAX [None]
